FAERS Safety Report 9844723 (Version 2)
Quarter: 2014Q1

REPORT INFORMATION
  Report Type: Report from Study
  Country: US (occurrence: US)
  Receive Date: 20140127
  Receipt Date: 20140130
  Transmission Date: 20141002
  Serious: Yes (Hospitalization, Other)
  Sender: FDA-Public Use
  Company Number: US-ROCHE-1337769

PATIENT
  Age: 63 Year
  Sex: Female
  Weight: 49.03 kg

DRUGS (12)
  1. XOLAIR [Suspect]
     Indication: ASTHMA
     Route: 065
     Dates: start: 201203
  2. RECLAST [Suspect]
     Indication: PRODUCT USED FOR UNKNOWN INDICATION
     Route: 065
  3. PROPYLTHIOURACIL [Concomitant]
     Route: 048
  4. MUCINEX [Concomitant]
     Route: 048
  5. SINGULAIR [Concomitant]
     Route: 065
  6. ALLEGRA [Concomitant]
  7. XYZAL [Concomitant]
     Indication: HYPERSENSITIVITY
  8. CREON [Concomitant]
  9. VITAMIN D3 [Concomitant]
  10. MELATONIN [Concomitant]
     Route: 065
  11. ALIGN [Concomitant]
  12. NASONEX [Concomitant]

REACTIONS (6)
  - Thrombosis [Recovered/Resolved]
  - Abasia [Unknown]
  - Influenza like illness [Unknown]
  - Blood immunoglobulin E increased [Unknown]
  - Chills [Unknown]
  - Chondrocalcinosis pyrophosphate [Unknown]
